FAERS Safety Report 5036278-3 (Version None)
Quarter: 2006Q2

REPORT INFORMATION
  Report Type: 
  Country: None (occurrence: None)
  Receive Date: 20060601
  Receipt Date: 20060501
  Transmission Date: 20061013
  Serious: No
  Sender: FDA-Public Use
  Company Number: US200605000435

PATIENT
  Age: 47 Year
  Sex: Female

DRUGS (8)
  1. CYMBALTA [Suspect]
     Indication: PAIN
     Dosage: 30 MG
     Dates: start: 20060425
  2. FELDENE [Concomitant]
  3. SOMA [Concomitant]
  4. ASPIRIN [Concomitant]
  5. ANTIMALARIALS [Concomitant]
  6. ARALEN (CHLOROQUINE PHOSPHATE) [Concomitant]
  7. AMITRIPTYLINE HCL [Concomitant]
  8. TYLENOL /USA/ (PARACETAMOL) [Concomitant]

REACTIONS (12)
  - AGITATION [None]
  - ASTHENIA [None]
  - DECREASED ACTIVITY [None]
  - FATIGUE [None]
  - FEELING ABNORMAL [None]
  - FEMALE ORGASMIC DISORDER [None]
  - HYPERACUSIS [None]
  - MALAISE [None]
  - PAIN [None]
  - PAIN IN EXTREMITY [None]
  - PERSONALITY CHANGE [None]
  - SOMNOLENCE [None]
